FAERS Safety Report 5255848-0 (Version None)
Quarter: 2007Q1

REPORT INFORMATION
  Report Type: 
  Country: None (occurrence: None)
  Receive Date: 20070301
  Receipt Date: 20070221
  Transmission Date: 20070707
  Serious: Yes (Hospitalization)
  Sender: FDA-Public Use
  Company Number: 2007S1000043

PATIENT
  Sex: Male

DRUGS (7)
  1. ACITRETIN [Suspect]
     Indication: KERATOSIS FOLLICULAR
     Dosage: PO
     Route: 048
     Dates: start: 20030601
  2. GENERIC DRUG NOS [Concomitant]
  3. VANCOMYCIN HYDROCHLORIDE [Concomitant]
  4. HYDROCHLORIDE [Concomitant]
  5. TAMOXIFEN CITRATE [Concomitant]
  6. LANSORPRAZOLE [Concomitant]
  7. METOCLOPRAMIDE [Concomitant]

REACTIONS (4)
  - DIALYSIS [None]
  - HEPATIC FUNCTION ABNORMAL [None]
  - INTESTINAL ISCHAEMIA [None]
  - RENAL FAILURE [None]
